FAERS Safety Report 6228333-7 (Version None)
Quarter: 2009Q2

REPORT INFORMATION
  Report Type: 
  Country: None (occurrence: None)
  Receive Date: 20090612
  Receipt Date: 20090601
  Transmission Date: 20091009
  Serious: Yes (Other)
  Sender: FDA-Public Use
  Company Number: US-PFIZER INC-2009217367

PATIENT
  Sex: Female
  Weight: 52.608 kg

DRUGS (5)
  1. DETROL LA [Suspect]
     Indication: HYPERTONIC BLADDER
     Dosage: 4 MG, 1X/DAY
     Dates: start: 20090501, end: 20090501
  2. LUMIGAN [Concomitant]
     Dosage: UNK
  3. TIMOLOL [Concomitant]
     Dosage: UNK
  4. AZOPT [Concomitant]
     Dosage: UNK
  5. ALPHAGAN [Concomitant]
     Dosage: UNK

REACTIONS (1)
  - GLAUCOMA [None]
